FAERS Safety Report 16803375 (Version 3)
Quarter: 2019Q4

REPORT INFORMATION
  Report Type: Spontaneous
  Country: US (occurrence: US)
  Receive Date: 20190913
  Receipt Date: 20191016
  Transmission Date: 20200122
  Serious: Yes (Death, Other)
  Sender: FDA-Public Use
  Company Number: US-AUROBINDO-AUR-APL-2019-059862

PATIENT
  Age: 28 Year
  Sex: Female

DRUGS (6)
  1. ZOLPIDEM [Concomitant]
     Active Substance: ZOLPIDEM TARTRATE
     Indication: INSOMNIA
     Dosage: 5 MILLIGRAM
     Route: 065
  2. OMEPRAZOLE. [Concomitant]
     Active Substance: OMEPRAZOLE
     Indication: PRODUCT USED FOR UNKNOWN INDICATION
     Dosage: 150 MILLIGRAM, DAILY
     Route: 065
  3. CLOZAPINE TABLET [Suspect]
     Active Substance: CLOZAPINE
     Indication: BIPOLAR DISORDER
     Dosage: 400 MILLIGRAM, ONCE A DAY (EVERY EVENING)
     Route: 048
  4. QUETIAPINE. [Concomitant]
     Active Substance: QUETIAPINE
     Indication: PRODUCT USED FOR UNKNOWN INDICATION
     Dosage: 200 MILLIGRAM, ONCE A DAY (EVERY NIGHT)
     Route: 065
  5. BENZATROPINE [Concomitant]
     Active Substance: BENZTROPINE
     Indication: EXTRAPYRAMIDAL DISORDER
     Dosage: 2 MILLIGRAM, TWO TIMES A DAY
     Route: 065
  6. TERBINAFINE. [Concomitant]
     Active Substance: TERBINAFINE
     Indication: PRODUCT USED FOR UNKNOWN INDICATION
     Dosage: 50 MILLIGRAM, ONCE A DAY (EVERY MORNING)
     Route: 065

REACTIONS (2)
  - Cardiac arrest [Fatal]
  - Neutrophilia [Unknown]

NARRATIVE: CASE EVENT DATE: 20190813
